FAERS Safety Report 8009989-5 (Version None)
Quarter: 2011Q4

REPORT INFORMATION
  Report Type: 
  Country: None (occurrence: None)
  Receive Date: 20111228
  Receipt Date: 20111220
  Transmission Date: 20120403
  Serious: Yes (Other)
  Sender: FDA-Public Use
  Company Number: US-BAYER-2011-110454

PATIENT
  Age: 59 Year
  Sex: Female

DRUGS (6)
  1. SORAFENIB (RAF KINASE INHIBITOR) [Suspect]
     Dosage: 200 MG, QID
     Route: 048
     Dates: start: 20111113, end: 20111101
  2. THYROID HORMONES [Concomitant]
  3. SORAFENIB (RAF KINASE INHIBITOR) [Suspect]
     Dosage: 200 MG, BID
     Route: 048
     Dates: start: 20111207
  4. ANTIHYPERTENSIVES [Concomitant]
     Indication: HYPERTENSION
  5. SORAFENIB (RAF KINASE INHIBITOR) [Suspect]
     Dosage: 400 MG, BID
     Route: 048
     Dates: start: 20111101, end: 20111130
  6. SORAFENIB (RAF KINASE INHIBITOR) [Suspect]
     Indication: THYROID CANCER
     Dosage: 200 MG, BID
     Route: 048
     Dates: start: 20111104, end: 20111112

REACTIONS (13)
  - FATIGUE [None]
  - VOMITING [None]
  - SOMNOLENCE [None]
  - PAIN IN EXTREMITY [None]
  - AMENORRHOEA [None]
  - DIARRHOEA [None]
  - POLLAKIURIA [None]
  - ABASIA [None]
  - ASTHENIA [None]
  - DECREASED APPETITE [None]
  - BACK PAIN [None]
  - PARAESTHESIA [None]
  - SKIN EXFOLIATION [None]
